FAERS Safety Report 4596645-9 (Version None)
Quarter: 2005Q1

REPORT INFORMATION
  Report Type: 
  Country: None (occurrence: None)
  Receive Date: 20050228
  Receipt Date: 20040809
  Transmission Date: 20050727
  Serious: Yes (Hospitalization)
  Sender: FDA-Public Use
  Company Number: 8639

PATIENT
  Age: 43 Year
  Sex: Female

DRUGS (7)
  1. METHOTREXATE [Suspect]
     Indication: POLYARTHRITIS
     Dosage: 20 MG WEEKLY PO
     Route: 048
     Dates: start: 20040216, end: 20040528
  2. METHOTREXATE [Suspect]
     Indication: SYSTEMIC LUPUS ERYTHEMATOSUS
     Dosage: 20 MG WEEKLY PO
     Route: 048
     Dates: start: 20040216, end: 20040528
  3. PREDNISOLONE [Suspect]
     Indication: POLYARTHRITIS
     Dosage: 15 MG PO
     Route: 048
     Dates: start: 20040201, end: 20040401
  4. PREDNISOLONE [Suspect]
     Indication: SYSTEMIC LUPUS ERYTHEMATOSUS
     Dosage: 15 MG PO
     Route: 048
     Dates: start: 20040201, end: 20040401
  5. CHLOROQUINE [Suspect]
     Indication: POLYARTHRITIS
     Dosage: 300 MG PO
     Route: 048
     Dates: start: 20040216
  6. CHLOROQUINE [Suspect]
     Indication: SYSTEMIC LUPUS ERYTHEMATOSUS
     Dosage: 300 MG PO
     Route: 048
     Dates: start: 20040216
  7. FOLIC ACID [Concomitant]

REACTIONS (2)
  - GENERAL PHYSICAL HEALTH DETERIORATION [None]
  - PULMONARY TUBERCULOSIS [None]
